FAERS Safety Report 4433396-5 (Version None)
Quarter: 2004Q3

REPORT INFORMATION
  Report Type: 
  Country: None (occurrence: None)
  Receive Date: 20040824
  Receipt Date: 20040809
  Transmission Date: 20050211
  Serious: No
  Sender: FDA-Public Use
  Company Number: K200401256

PATIENT
  Age: 57 Year
  Sex: Female
  Weight: 47.6 kg

DRUGS (1)
  1. EPIPEN [Suspect]
     Indication: ALLERGY TO ARTHROPOD STING
     Dosage: 0.3 MG, SINGLE, INTRAMUSCULAR
     Route: 030
     Dates: start: 20040730, end: 20040730

REACTIONS (3)
  - FOREIGN BODY TRAUMA [None]
  - INJECTION SITE HAEMORRHAGE [None]
  - PHARMACEUTICAL PRODUCT COMPLAINT [None]
